FAERS Safety Report 22291956 (Version 2)
Quarter: 2023Q2

REPORT INFORMATION
  Report Type: Report from Study
  Country: US (occurrence: US)
  Receive Date: 20230508
  Receipt Date: 20230509
  Transmission Date: 20230722
  Serious: Yes (Hospitalization)
  Sender: FDA-Public Use
  Company Number: US-BEH-2023158118

PATIENT
  Sex: Male
  Weight: 59 kg

DRUGS (3)
  1. HEMGENIX [Suspect]
     Active Substance: ETRANACOGENE DEZAPARVOVEC
     Indication: Factor IX deficiency
     Dosage: 118 MILLILITER, (2X10^13 GC/KG), SINGLE DOSE
     Route: 042
     Dates: start: 20190730, end: 20190730
  2. OMEPRAZOLE [Concomitant]
     Active Substance: OMEPRAZOLE
     Indication: Gastrooesophageal reflux disease
     Dosage: 40 MILLIGRAM, QD
     Route: 048
  3. IBUPROFEN [Concomitant]
     Active Substance: IBUPROFEN
     Indication: Pain
     Dosage: 200 MILLIGRAM, PRN
     Route: 048

REACTIONS (1)
  - Haemorrhoidal haemorrhage [Unknown]

NARRATIVE: CASE EVENT DATE: 20230426
